FAERS Safety Report 9909017 (Version 1)
Quarter: 2014Q1

REPORT INFORMATION
  Report Type: Spontaneous
  Country: DE (occurrence: None)
  Receive Date: 20140212
  Receipt Date: 20140212
  Transmission Date: 20141002
  Serious: Yes (Death)
  Sender: FDA-Public Use
  Company Number: 1402-0311

PATIENT
  Age: 72 Year
  Sex: Male

DRUGS (1)
  1. EYLEA (AFLIBERCEPT) (SOLUTION FOR INJECTION) (AFLIBERCEPT) [Suspect]
     Indication: RETINAL VEIN OCCLUSION
     Route: 031
     Dates: start: 20131226, end: 20131226

REACTIONS (1)
  - Cardiac failure [None]
